FAERS Safety Report 14742784 (Version 2)
Quarter: 2018Q2

REPORT INFORMATION
  Report Type: Spontaneous
  Country: FR (occurrence: FR)
  Receive Date: 20180410
  Receipt Date: 20180411
  Transmission Date: 20180711
  Serious: Yes (Life-Threatening)
  Sender: FDA-Public Use
  Company Number: PHHY2018FR062709

PATIENT
  Age: 31 Year
  Sex: Male
  Weight: 89 kg

DRUGS (4)
  1. ESMERON [Suspect]
     Active Substance: ROCURONIUM BROMIDE
     Indication: ANAESTHESIA
     Dosage: 1 DF, UNK (1 UG/LITRE)
     Route: 042
     Dates: start: 20180117, end: 20180117
  2. PROPOFOL LIPURO [Suspect]
     Active Substance: PROPOFOL
     Indication: ANAESTHESIA
     Dosage: 1 DF, UNK (1 UG/LITRE)
     Route: 042
     Dates: start: 20180117, end: 20180117
  3. SUFENTANIL [Suspect]
     Active Substance: SUFENTANIL
     Indication: ANAESTHESIA
     Dosage: 30 UG, UNK
     Route: 042
     Dates: start: 20180117, end: 20180117
  4. AMOXICILLIN CLAVULANIC ACID SANDOZ [Suspect]
     Active Substance: AMOXICILLIN\CLAVULANIC ACID
     Indication: ANTIBIOTIC PROPHYLAXIS
     Dosage: 1 DF, UNK (1 UG/LITRE)
     Route: 042
     Dates: start: 20180117, end: 20180117

REACTIONS (1)
  - Anaphylactic shock [Recovered/Resolved]

NARRATIVE: CASE EVENT DATE: 20180117
